FAERS Safety Report 14790074 (Version 3)
Quarter: 2019Q2

REPORT INFORMATION
  Report Type: Report from Study
  Country: US (occurrence: US)
  Receive Date: 20180423
  Receipt Date: 20190412
  Transmission Date: 20190711
  Serious: Yes (Other)
  Sender: FDA-Public Use
  Company Number: PHEH2018US014658

PATIENT
  Sex: Female

DRUGS (1)
  1. ENTRESTO [Suspect]
     Active Substance: SACUBITRIL\VALSARTAN
     Indication: PRODUCT USED FOR UNKNOWN INDICATION
     Route: 048

REACTIONS (11)
  - Cough [Unknown]
  - Diabetes mellitus [Unknown]
  - Sneezing [Unknown]
  - Productive cough [Unknown]
  - Seasonal affective disorder [Unknown]
  - Weight increased [Unknown]
  - Swelling [Unknown]
  - Hypersensitivity [Unknown]
  - Foot fracture [Recovered/Resolved]
  - Depression [Unknown]
  - Fluid retention [Unknown]
